FAERS Safety Report 9050589 (Version 1)
Quarter: 2013Q1

REPORT INFORMATION
  Report Type: Spontaneous
  Country: FR (occurrence: FR)
  Receive Date: 20130205
  Receipt Date: 20130205
  Transmission Date: 20140127
  Serious: Yes (Death, Hospitalization)
  Sender: FDA-Public Use
  Company Number: FR-BAXTER-2013BAX003588

PATIENT
  Age: 80 None
  Sex: Female

DRUGS (2)
  1. ENDOXAN [Suspect]
     Indication: CHEMOTHERAPY
     Route: 048
     Dates: start: 201203
  2. METHOTREXATE [Suspect]
     Indication: CHEMOTHERAPY
     Route: 048
     Dates: start: 201203, end: 201208

REACTIONS (5)
  - Asthenia [Not Recovered/Not Resolved]
  - Hepatic enzyme abnormal [Not Recovered/Not Resolved]
  - Macrocytosis [Not Recovered/Not Resolved]
  - Lung disorder [Fatal]
  - Disease progression [Fatal]
